FAERS Safety Report 9619621 (Version 3)
Quarter: 2013Q4

REPORT INFORMATION
  Report Type: Spontaneous
  Country: JP (occurrence: JP)
  Receive Date: 20131014
  Receipt Date: 20131028
  Transmission Date: 20140711
  Serious: Yes (Other)
  Sender: FDA-Public Use
  Company Number: JP-ABBVIE-13P-087-1157238-00

PATIENT
  Age: 72 Year
  Sex: Female

DRUGS (4)
  1. KLARICID [Suspect]
     Indication: MENINGOENCEPHALITIS AMOEBIC
     Route: 048
  2. PENTAMIDINE [Suspect]
     Indication: MENINGOENCEPHALITIS AMOEBIC
     Route: 042
  3. FLUCONAZOLE [Concomitant]
     Indication: MENINGOENCEPHALITIS AMOEBIC
     Route: 042
  4. ALBENDAZOLE [Concomitant]
     Indication: MENINGOENCEPHALITIS AMOEBIC
     Route: 048

REACTIONS (2)
  - Blood glucose decreased [Unknown]
  - Electrocardiogram QT prolonged [Unknown]
